FAERS Safety Report 4589168-4 (Version None)
Quarter: 2005Q1

REPORT INFORMATION
  Report Type: 
  Country: None (occurrence: None)
  Receive Date: 20050215
  Receipt Date: 20050215
  Transmission Date: 20050727
  Serious: Yes (Other)
  Sender: FDA-Public Use
  Company Number: None

PATIENT
  Sex: Male
  Weight: 63 kg

DRUGS (1)
  1. XIGRIS [Suspect]
     Indication: SEPSIS
     Dosage: 24 MCG/KG/HR  INTRAVENOUS
     Route: 042
     Dates: start: 20050207, end: 20050210

REACTIONS (2)
  - EPISTAXIS [None]
  - MOUTH HAEMORRHAGE [None]
